FAERS Safety Report 15632204 (Version 2)
Quarter: 2018Q4

REPORT INFORMATION
  Report Type: Other
  Country: None (occurrence: US)
  Receive Date: 20181119
  Receipt Date: 20181210
  Transmission Date: 20190205
  Serious: Yes (Other)
  Sender: FDA-Public Use
  Company Number: US-POPULATION COUNCIL, INC.-2059003

PATIENT
  Sex: Female

DRUGS (1)
  1. JADELLE [Suspect]
     Active Substance: LEVONORGESTREL

REACTIONS (2)
  - Pregnancy with implant contraceptive [None]
  - Menstruation delayed [None]

NARRATIVE: CASE EVENT DATE: 2018
